FAERS Safety Report 5936497-5 (Version None)
Quarter: 2008Q4

REPORT INFORMATION
  Report Type: 
  Country: None (occurrence: None)
  Receive Date: 20081030
  Receipt Date: 20081024
  Transmission Date: 20090506
  Serious: Yes (Hospitalization, Disabling, Other)
  Sender: FDA-Public Use
  Company Number: AT-AMGEN-UK279155

PATIENT
  Sex: Male
  Weight: 76 kg

DRUGS (11)
  1. MIMPARA [Suspect]
     Indication: DRUG USE FOR UNKNOWN INDICATION
     Route: 048
     Dates: start: 20070302, end: 20070327
  2. PROGRAF [Concomitant]
     Route: 048
     Dates: start: 20031111
  3. PROGRAF [Concomitant]
     Route: 048
  4. MYFORTIC [Concomitant]
     Route: 048
     Dates: start: 20031111
  5. APREDNISLON [Concomitant]
     Route: 048
  6. EFAVIRENZ [Concomitant]
     Route: 048
  7. KIVEXA [Concomitant]
     Route: 048
  8. DIAMICRON [Concomitant]
     Route: 048
  9. PANTOPRAZOLE SODIUM [Concomitant]
     Route: 048
  10. THROMBO ASS [Concomitant]
     Route: 048
  11. TRITACE [Concomitant]
     Route: 048

REACTIONS (4)
  - ANGINA PECTORIS [None]
  - BLOOD CREATININE INCREASED [None]
  - HYPERTENSION [None]
  - IMMUNOSUPPRESSANT DRUG LEVEL INCREASED [None]
